FAERS Safety Report 7507017-9 (Version None)
Quarter: 2011Q2

REPORT INFORMATION
  Report Type: 
  Country: None (occurrence: None)
  Receive Date: 20110526
  Receipt Date: 20110520
  Transmission Date: 20111010
  Serious: Yes (Hospitalization)
  Sender: FDA-Public Use
  Company Number: US-B.I. PHARMACEUTICALS,INC./RIDGEFIELD-2011-BP-05882BP

PATIENT
  Sex: Female

DRUGS (5)
  1. PRADAXA [Suspect]
     Indication: ATRIAL FIBRILLATION
  2. XELODA [Concomitant]
  3. AVAPRO [Concomitant]
  4. BISOPROLOL FUMARATE [Concomitant]
  5. DIGOXIN [Concomitant]

REACTIONS (1)
  - EPISTAXIS [None]
